FAERS Safety Report 5815829-2 (Version None)
Quarter: 2008Q3

REPORT INFORMATION
  Report Type: 
  Country: None (occurrence: None)
  Receive Date: 20080721
  Receipt Date: 20080711
  Transmission Date: 20090109
  Serious: Yes (Other)
  Sender: FDA-Public Use
  Company Number: US-JNJFOC-20080603387

PATIENT
  Sex: Female

DRUGS (1)
  1. MONONESSA [Suspect]
     Indication: CONTRACEPTION
     Route: 048

REACTIONS (3)
  - MIGRAINE [None]
  - THROMBOSIS [None]
  - VISUAL FIELD DEFECT [None]
